FAERS Safety Report 16863259 (Version 5)
Quarter: 2020Q3

REPORT INFORMATION
  Report Type: Spontaneous
  Country: US (occurrence: US)
  Receive Date: 20190927
  Receipt Date: 20200710
  Transmission Date: 20201102
  Serious: Yes (Life-Threatening, Hospitalization, Other)
  Sender: FDA-Public Use
  Company Number: US-ASTRAZENECA-2019SF36591

PATIENT
  Age: 698 Month
  Sex: Male
  Weight: 170.1 kg

DRUGS (68)
  1. XIGDUO XR [Suspect]
     Active Substance: DAPAGLIFLOZIN PROPANEDIOL\METFORMIN HYDROCHLORIDE
     Indication: WEIGHT DECREASED
     Dosage: 5MG?1000MG
     Route: 048
     Dates: start: 20151230
  2. OMEPRAZOLE. [Concomitant]
     Active Substance: OMEPRAZOLE
  3. LACTATED RIINGER [Concomitant]
  4. OCULAR LUBRICANT [Concomitant]
  5. XIGDUO XR [Suspect]
     Active Substance: DAPAGLIFLOZIN PROPANEDIOL\METFORMIN HYDROCHLORIDE
     Indication: WEIGHT DECREASED
     Dosage: 5MG?1000MG ? EXTENDED RELEASE
     Route: 048
     Dates: start: 20181017
  6. XIGDUO XR [Suspect]
     Active Substance: DAPAGLIFLOZIN PROPANEDIOL\METFORMIN HYDROCHLORIDE
     Indication: HYPERTENSION
     Dosage: 5MG?1000MG ? EXTENDED RELEASE
     Route: 048
     Dates: start: 20181017
  7. METFORMIN HYDROCHLORIDE. [Concomitant]
     Active Substance: METFORMIN HYDROCHLORIDE
  8. MELOXICAM. [Concomitant]
     Active Substance: MELOXICAM
  9. HYDROCODONE?ACETAMINOPHEN [Concomitant]
     Active Substance: ACETAMINOPHEN\HYDROCODONE
  10. VANCOMYCIN [Concomitant]
     Active Substance: VANCOMYCIN
  11. HYDROCORTISONE. [Concomitant]
     Active Substance: HYDROCORTISONE
  12. DEXTROSE. [Concomitant]
     Active Substance: DEXTROSE
  13. NOVOLOG [Concomitant]
     Active Substance: INSULIN ASPART
  14. XIGDUO XR [Suspect]
     Active Substance: DAPAGLIFLOZIN PROPANEDIOL\METFORMIN HYDROCHLORIDE
     Indication: HYPERTENSION
     Dosage: 5MG?1000MG
     Route: 048
     Dates: start: 20151230
  15. PANTOPRAZOLE SODIUM. [Concomitant]
     Active Substance: PANTOPRAZOLE SODIUM
  16. OLOPATADINE. [Concomitant]
     Active Substance: OLOPATADINE
  17. METHYLPHENIDATE. [Concomitant]
     Active Substance: METHYLPHENIDATE
  18. MELATONIN [Concomitant]
     Active Substance: MELATONIN
  19. METOPROLOL SUCCINATE. [Concomitant]
     Active Substance: METOPROLOL SUCCINATE
     Route: 048
  20. FENTANYL. [Concomitant]
     Active Substance: FENTANYL
  21. KETAMINE [Concomitant]
     Active Substance: KETAMINE
  22. ETOMIDATE. [Concomitant]
     Active Substance: ETOMIDATE
  23. GLUCAGON. [Concomitant]
     Active Substance: GLUCAGON
  24. ALBUTEROL. [Concomitant]
     Active Substance: ALBUTEROL
  25. XIGDUO XR [Suspect]
     Active Substance: DAPAGLIFLOZIN PROPANEDIOL\METFORMIN HYDROCHLORIDE
     Indication: TYPE 2 DIABETES MELLITUS
     Route: 048
     Dates: start: 201512, end: 201810
  26. XIGDUO XR [Suspect]
     Active Substance: DAPAGLIFLOZIN PROPANEDIOL\METFORMIN HYDROCHLORIDE
     Indication: WEIGHT DECREASED
     Route: 048
     Dates: start: 201512, end: 201810
  27. XIGDUO XR [Suspect]
     Active Substance: DAPAGLIFLOZIN PROPANEDIOL\METFORMIN HYDROCHLORIDE
     Indication: TYPE 2 DIABETES MELLITUS
     Dosage: 5MG?1000MG
     Route: 048
     Dates: start: 20151230
  28. OXYCONTIN [Concomitant]
     Active Substance: OXYCODONE HYDROCHLORIDE
  29. PORCINE [Concomitant]
  30. OXYCODONE [Concomitant]
     Active Substance: OXYCODONE
  31. INSULIN [Concomitant]
     Active Substance: INSULIN NOS
  32. GLYCOPYRROLATE. [Concomitant]
     Active Substance: GLYCOPYRROLATE
  33. SUCCINYL [Concomitant]
     Active Substance: SUCCINYLCHOLINE CHLORIDE
  34. OPANA [Concomitant]
     Active Substance: OXYMORPHONE HYDROCHLORIDE
  35. DECONEX [Concomitant]
     Active Substance: GUAIFENESIN\PHENYLEPHRINE HYDROCHLORIDE
  36. NOREPINEPHRINE. [Concomitant]
     Active Substance: NOREPINEPHRINE
  37. MEROPENEM. [Concomitant]
     Active Substance: MEROPENEM
  38. ENOXAPARIN [Concomitant]
     Active Substance: ENOXAPARIN
  39. LIDOCAINE. [Concomitant]
     Active Substance: LIDOCAINE
  40. ONDANSETRON [Concomitant]
     Active Substance: ONDANSETRON
  41. TROPONIN [Concomitant]
  42. BYDUREON [Concomitant]
     Active Substance: EXENATIDE
  43. ZOSYN [Concomitant]
     Active Substance: PIPERACILLIN SODIUM\TAZOBACTAM SODIUM
  44. ROCURONIUM [Concomitant]
     Active Substance: ROCURONIUM BROMIDE
  45. FUROSEMIDE. [Concomitant]
     Active Substance: FUROSEMIDE
  46. CEPHALEXIN. [Concomitant]
     Active Substance: CEPHALEXIN
     Route: 048
  47. ALBUMIN [Concomitant]
     Active Substance: ALBUMIN HUMAN
  48. MIDAZOLAM. [Concomitant]
     Active Substance: MIDAZOLAM
  49. PROTONIX [Concomitant]
     Active Substance: PANTOPRAZOLE SODIUM
  50. DIPHENHYDRAMINE. [Concomitant]
     Active Substance: DIPHENHYDRAMINE
  51. XIGDUO XR [Suspect]
     Active Substance: DAPAGLIFLOZIN PROPANEDIOL\METFORMIN HYDROCHLORIDE
     Indication: TYPE 2 DIABETES MELLITUS
     Dosage: 5MG?1000MG ? EXTENDED RELEASE
     Route: 048
     Dates: start: 20181017
  52. ALPRAZOLAM. [Concomitant]
     Active Substance: ALPRAZOLAM
  53. NARCAN [Concomitant]
     Active Substance: NALOXONE HYDROCHLORIDE
  54. CARISOPRODOL. [Concomitant]
     Active Substance: CARISOPRODOL
  55. PHENYLEPHRINE [Concomitant]
     Active Substance: PHENYLEPHRINE HYDROCHLORIDE
  56. SODIUM CHLORIDE. [Concomitant]
     Active Substance: SODIUM CHLORIDE
  57. BENADRYL [Concomitant]
     Active Substance: DIPHENHYDRAMINE HYDROCHLORIDE
  58. GUAIFENESIN?DEXTROMETHORPHAN [Concomitant]
  59. XIGDUO XR [Suspect]
     Active Substance: DAPAGLIFLOZIN PROPANEDIOL\METFORMIN HYDROCHLORIDE
     Indication: HYPERTENSION
     Route: 048
     Dates: start: 201512, end: 201810
  60. AMLODIPINE BESYLATE. [Concomitant]
     Active Substance: AMLODIPINE BESYLATE
  61. HYDROMORPHONE [Concomitant]
     Active Substance: HYDROMORPHONE
  62. GABAPENTIN. [Concomitant]
     Active Substance: GABAPENTIN
  63. CLINDAMYCIN. [Concomitant]
     Active Substance: CLINDAMYCIN
  64. VASOPRESSIN. [Concomitant]
     Active Substance: VASOPRESSIN
  65. FAMOTIDINE. [Concomitant]
     Active Substance: FAMOTIDINE
  66. PIPER?TAZO [Concomitant]
  67. MORPHINE [Concomitant]
     Active Substance: MORPHINE
  68. PHENOL TOPICAL [Concomitant]

REACTIONS (10)
  - Fournier^s gangrene [Unknown]
  - Septic shock [Unknown]
  - Hypotension [Unknown]
  - Sepsis [Unknown]
  - Acute kidney injury [Unknown]
  - Renal failure [Unknown]
  - Necrotising soft tissue infection [Unknown]
  - Perirectal abscess [Unknown]
  - Cellulitis of male external genital organ [Unknown]
  - Necrotising fasciitis [Unknown]

NARRATIVE: CASE EVENT DATE: 201710
